FAERS Safety Report 7461009-7 (Version None)
Quarter: 2011Q2

REPORT INFORMATION
  Report Type: 
  Country: None (occurrence: None)
  Receive Date: 20110505
  Receipt Date: 20110425
  Transmission Date: 20111010
  Serious: Yes (Death, Hospitalization)
  Sender: FDA-Public Use
  Company Number: US-ELI_LILLY_AND_COMPANY-US201104000444

PATIENT
  Sex: Male
  Weight: 68.29 kg

DRUGS (2)
  1. PREDNISOLONE [Concomitant]
  2. FORTEO [Suspect]
     Indication: OSTEOPOROSIS
     Dosage: 20 UG, QD
     Route: 058
     Dates: start: 20101110, end: 20110330

REACTIONS (3)
  - PULMONARY FIBROSIS [None]
  - PULMONARY SARCOIDOSIS [None]
  - RESPIRATORY FAILURE [None]
